FAERS Safety Report 21419881 (Version 4)
Quarter: 2023Q4

REPORT INFORMATION
  Report Type: Report from Study
  Country: US (occurrence: US)
  Receive Date: 20221006
  Receipt Date: 20231109
  Transmission Date: 20240110
  Serious: Yes (Death, Hospitalization, Other)
  Sender: FDA-Public Use
  Company Number: US-ACADIA PHARMACEUTICALS INC.-ACA-2022-PIM-003100

PATIENT
  Age: 77 Year
  Sex: Male

DRUGS (48)
  1. NUPLAZID [Suspect]
     Active Substance: PIMAVANSERIN TARTRATE
     Indication: Parkinson^s disease psychosis
     Dosage: 34 MILLIGRAM, QD
     Route: 048
     Dates: end: 20220830
  2. NUPLAZID [Suspect]
     Active Substance: PIMAVANSERIN TARTRATE
     Dosage: 34 MILLIGRAM, QD
     Route: 048
     Dates: start: 202307
  3. PROPRANOLOL [Suspect]
     Active Substance: PROPRANOLOL HYDROCHLORIDE
     Indication: Bradycardia
     Dosage: 10 MILLIGRAM, BID
     Dates: end: 20220830
  4. SINEMET CR [Concomitant]
     Active Substance: CARBIDOPA\LEVODOPA
     Dosage: 50-200 MG, HS
     Dates: start: 2022
  5. SINEMET CR [Concomitant]
     Active Substance: CARBIDOPA\LEVODOPA
     Dosage: 25-100 MG, 5 TIMES PER DAY
  6. AMANTADINE [Concomitant]
     Active Substance: AMANTADINE
     Indication: Parkinson^s disease
     Dosage: 100 MILLIGRAM, TID, VIA PEG TUBE
     Dates: start: 20230620
  7. ATORVASTATIN CALCIUM [Concomitant]
     Active Substance: ATORVASTATIN CALCIUM
     Indication: Hyperlipidaemia
     Dosage: 10 MILLIGRAM, QD, VIA PEG TUBE
     Dates: start: 20230620
  8. DEPAKOTE ER [Concomitant]
     Active Substance: DIVALPROEX SODIUM
     Dosage: 500 MILLIGRAM, BID
  9. LEVOCETIRIZINE [Concomitant]
     Active Substance: LEVOCETIRIZINE
     Dosage: 5 MILLIGRAM, QD
  10. MYRBETRIQ [Concomitant]
     Active Substance: MIRABEGRON
     Indication: Urinary retention
     Dosage: 50 MILLIGRAM, XR (EXTENDED RELEASE) QD, VIA PEG TUBE
     Dates: start: 20230621
  11. SEROQUEL [Concomitant]
     Active Substance: QUETIAPINE FUMARATE
     Indication: Bipolar disorder
     Dosage: 200 MILLIGRAM, HS, VIA PEG TUBE
  12. PRILOSEC [Concomitant]
     Active Substance: OMEPRAZOLE MAGNESIUM
     Dosage: 20 MILLIGRAM, QD
  13. VISTARIL (HYDROXYZINE HYDROCHLORIDE) [Concomitant]
     Active Substance: HYDROXYZINE HYDROCHLORIDE
     Dosage: 25 MILLIGRAM, QD
  14. DONEPEZIL [Concomitant]
     Active Substance: DONEPEZIL
     Indication: Dementia
     Dosage: 10 MILLIGRAM, HS, VIA PEG TUBE
  15. DUOPA [Concomitant]
     Active Substance: CARBIDOPA\LEVODOPA
     Dosage: ADMINISTER CONTENTS OF 1 CASSETTE VIA PEG-J FOR UP TO 16 HOURS EACH DAY. MORNING DOSE: 11 ML. CONTIN
  16. ARICEPT [Concomitant]
     Active Substance: DONEPEZIL HYDROCHLORIDE
     Dosage: 10 MILLIGRAM, QD
  17. ASPIRIN [Concomitant]
     Active Substance: ASPIRIN
     Dosage: 81 MILLIGRAM, QAM, 1 TIME A DAY VIA PEG TUBE
     Dates: start: 20230621
  18. BETHANECHOL CHLORIDE [Concomitant]
     Active Substance: BETHANECHOL CHLORIDE
     Indication: Urinary retention
     Dosage: 10 MILLIGRAM, TID, VIA PEG TUBE
  19. COLACE [Concomitant]
     Active Substance: DOCUSATE SODIUM
     Dosage: 100 MILLIGRAM, DAILY, GTUBE
  20. COREG [Concomitant]
     Active Substance: CARVEDILOL
     Indication: Hypertension
     Dosage: 3.125 MG, BID, VIA PEG TUBE
     Dates: start: 20230620
  21. DIABETIC TUSSIN EXPECTORANT [Concomitant]
     Active Substance: GUAIFENESIN
     Indication: Pulmonary congestion
     Dosage: 100 MG/5 ML, Q4H, PRN
  22. ELIQUIS [Concomitant]
     Active Substance: APIXABAN
     Dosage: 5 MILLIGRAM, BID
  23. FLONASE ALLERGY RELIEF [Concomitant]
     Active Substance: FLUTICASONE PROPIONATE
     Dosage: 2 SPRAYS, 2 NOSTRILS, DAILY
  24. FUROSEMIDE [Concomitant]
     Active Substance: FUROSEMIDE
     Indication: Oedema
     Dosage: 20 MILLIGRAM, DAILY
     Dates: start: 20230713
  25. KRILL OIL [Concomitant]
     Active Substance: DIETARY SUPPLEMENT\KRILL OIL
     Dosage: 1 GRAM, FEEDING TUBE, BID
  26. LACTULOSE [Concomitant]
     Active Substance: LACTULOSE
     Indication: Hepatic encephalopathy
     Dosage: 10G/15 ML, TID, 30 ML THREE TIIMES A DAY VIA PEG TUBE
     Dates: start: 20230620
  27. LIPITOR [Concomitant]
     Active Substance: ATORVASTATIN CALCIUM
     Dosage: 10 MILLIGRAM, QHS
  28. LOSARTAN [Concomitant]
     Active Substance: LOSARTAN
     Indication: Hyperlipidaemia
     Dosage: 25 MILLIGRAM, DAILY, VIA PEG TUBE
     Dates: start: 20230621
  29. MURO 128 [Concomitant]
     Active Substance: SODIUM CHLORIDE
     Dosage: 5%, 1 DROPS, QHS
     Route: 047
  30. OMEPRAZOLE [Concomitant]
     Active Substance: OMEPRAZOLE
     Dosage: 10 MILLIGRAM, DAILY
     Route: 048
  31. ONDANSETRON [Concomitant]
     Active Substance: ONDANSETRON
     Dosage: 4 MILLIGRAM, Q4H, PRN
  32. POTASSIUM CHLORIDE [Concomitant]
     Active Substance: POTASSIUM CHLORIDE
     Dosage: 20 MEQ/15 ML, DAILY
     Route: 048
  33. SPIRONOLACTONE [Concomitant]
     Active Substance: SPIRONOLACTONE
     Indication: Hypertension
     Dosage: 25 MILLIGRAM, 0.5 TABLET, DAILY, VIA PEG TUBE
     Dates: start: 20230621
  34. VITAMINS NOS [Concomitant]
     Active Substance: VITAMINS
     Indication: Supplementation therapy
     Dosage: 1 TABLET, QAM, VIA PEG TUBE
     Route: 048
     Dates: start: 20230621
  35. VALPROIC ACID [Concomitant]
     Active Substance: VALPROIC ACID
     Dosage: 250 MG/5 ML, BID
  36. VITAMIN B COMPLEX [Concomitant]
     Active Substance: CYANOCOBALAMIN\DEXPANTHENOL\NIACINAMIDE\PYRIDOXINE HYDROCHLORIDE\RIBOFLAVIN 5^-PHOSPHATE SODIUM\THIA
     Indication: Supplementation therapy
     Dosage: 1 TABLET, QAM, ONE TIME A DAY, VIA PEG TUBE
     Route: 048
     Dates: start: 20230621
  37. VITAMIN D3 [Concomitant]
     Active Substance: CHOLECALCIFEROL
     Dosage: 50 MCG, 1 TABLET, QD
  38. XYZAL [Concomitant]
     Active Substance: LEVOCETIRIZINE DIHYDROCHLORIDE
     Dosage: 5 MILLIGRAM, 1 TABLET, QHS
  39. APIXABAN [Concomitant]
     Active Substance: APIXABAN
     Indication: Atrial fibrillation
     Dosage: 5 MILLIGRAM, 1 TABLET, TWO TIMES A DAY VIA PEG TUBE
  40. CARBIDOPA\LEVODOPA [Concomitant]
     Active Substance: CARBIDOPA\LEVODOPA
     Indication: Parkinson^s disease
     Dosage: 25-100 MG, 2 TABLETS, FIVE TIMES A DAY VIA PEG TUBE
     Dates: start: 20230620
  41. CHOLECALCIFEROL [Concomitant]
     Active Substance: CHOLECALCIFEROL
     Indication: Supplementation therapy
     Dosage: 1 TABLETS ONE TIME A DAY VIA PEG TUBE
     Dates: start: 20230621
  42. DIVALPROEX SODIUM [Concomitant]
     Active Substance: DIVALPROEX SODIUM
     Indication: Parkinson^s disease
     Dosage: 125 MILLIGRAM, 4 TABLET 2 TIMES A DAY, VIA PEG TUBE
     Dates: start: 20230620
  43. DOCUSATE SODIUM [Concomitant]
     Active Substance: DOCUSATE SODIUM
     Indication: Constipation
     Dosage: 100 MILLIGRAM, 1 TIME A DAY VIA PEG TUBE
     Dates: start: 20230621
  44. GUAIFENESIN [Concomitant]
     Active Substance: GUAIFENESIN
     Indication: Cough
     Dosage: 10 ML EVERY 4 HOURS VIA PEG TUBE
     Dates: start: 20230620
  45. LEVOCETIRIZINE HYDROCHLORIDE [Concomitant]
     Active Substance: LEVOCETIRIZINE HYDROCHLORIDE
     Indication: Insomnia
     Dosage: 5 MILLIGRAM, 1 TABLET AT BEDTIME
     Dates: start: 20230620
  46. OMEGA-3 FATTY ACIDS [Concomitant]
     Active Substance: OMEGA-3 FATTY ACIDS
     Indication: Supplementation therapy
     Dosage: 2 TIMES A DAY, VIA PEG TUBE
     Dates: start: 20230621
  47. OMEPRAZOLE [Concomitant]
     Active Substance: OMEPRAZOLE
     Indication: Gastrooesophageal reflux disease
     Dosage: 20 MILLIGRAM, 1 TABLET VIA PEG T UBE
     Dates: start: 20230626
  48. ZOFRAN [Concomitant]
     Active Substance: ONDANSETRON HYDROCHLORIDE
     Indication: Nausea
     Dosage: 4 MILLIGRAM, 1 TABLET EVERY 4 HOURS AS NEEDED, VIA PEG TUBE
     Dates: start: 20230620

REACTIONS (8)
  - Sepsis [Recovered/Resolved]
  - Multiple organ dysfunction syndrome [Recovered/Resolved]
  - Hepatic failure [Recovered/Resolved]
  - Cardiovascular insufficiency [Recovered/Resolved]
  - Bradycardia [Unknown]
  - Syncope [Unknown]
  - Product dose omission issue [Unknown]
  - Hallucination [Recovered/Resolved]

NARRATIVE: CASE EVENT DATE: 20220816
